FAERS Safety Report 8145289-0 (Version None)
Quarter: 2012Q1

REPORT INFORMATION
  Report Type: 
  Country: None (occurrence: None)
  Receive Date: 20120217
  Receipt Date: 20120209
  Transmission Date: 20120608
  Serious: Yes (Hospitalization)
  Sender: FDA-Public Use
  Company Number: PHHY2012AR011177

PATIENT

DRUGS (1)
  1. LEVOFLOXACIN [Suspect]
     Indication: PNEUMONIA
     Dosage: 500 MG, PER DAY

REACTIONS (7)
  - CEREBRAL ATROPHY [None]
  - PSYCHOMOTOR HYPERACTIVITY [None]
  - CONFUSIONAL STATE [None]
  - HALLUCINATION, VISUAL [None]
  - DISORIENTATION [None]
  - CENTRAL NERVOUS SYSTEM LESION [None]
  - TOXICITY TO VARIOUS AGENTS [None]
